FAERS Safety Report 7274413-7 (Version None)
Quarter: 2011Q1

REPORT INFORMATION
  Report Type: 
  Country: None (occurrence: None)
  Receive Date: 20110204
  Receipt Date: 20110127
  Transmission Date: 20110831
  Serious: Yes (Death)
  Sender: FDA-Public Use
  Company Number: US-JNJFOC-20100207220

PATIENT
  Sex: Female
  Weight: 99.79 kg

DRUGS (13)
  1. DURAGESIC-50 [Suspect]
     Indication: EAR PAIN
     Route: 062
  2. FENTANYL CITRATE [Suspect]
     Indication: PRODUCT USED FOR UNKNOWN INDICATION
     Route: 062
  3. FENTANYL [Suspect]
     Indication: ILL-DEFINED DISORDER
     Route: 062
  4. NORTRIPTYLINE [Concomitant]
     Route: 065
  5. DURAGESIC-50 [Suspect]
     Indication: BACK PAIN
     Route: 062
  6. DARVOCET (PROPOXYPHENE NAPSYLATE W/ACETAMINOPHENE) [Suspect]
     Indication: ILL-DEFINED DISORDER
     Route: 065
  7. DURAGESIC-50 [Suspect]
     Indication: HEADACHE
     Route: 062
  8. DULOXETINE [Concomitant]
     Route: 065
  9. HYDROCODONE BITARTRATE [Concomitant]
     Route: 065
  10. DURAGESIC-50 [Suspect]
     Indication: PAIN IN EXTREMITY
     Route: 062
  11. VICODIN [Suspect]
     Indication: ILL-DEFINED DISORDER
     Route: 065
  12. DIPHENHYDRAMINE [Concomitant]
     Route: 065
  13. FLUOXETINE [Concomitant]
     Route: 065

REACTIONS (6)
  - TOXICITY TO VARIOUS AGENTS [None]
  - IMPULSIVE BEHAVIOUR [None]
  - DEPRESSION [None]
  - DRUG INEFFECTIVE [None]
  - SEDATION [None]
  - HYPERSENSITIVITY [None]
